FAERS Safety Report 21555913 (Version 21)
Quarter: 2025Q1

REPORT INFORMATION
  Report Type: Report from Study
  Country: US (occurrence: US)
  Receive Date: 20221104
  Receipt Date: 20250314
  Transmission Date: 20250408
  Serious: Yes (Hospitalization, Other)
  Sender: TAKEDA
  Company Number: US-TAKEDA-2022TUS025952

PATIENT
  Age: 63 Year
  Sex: Female
  Weight: 77 kg

DRUGS (16)
  1. HUMAN IMMUNOGLOBULIN G [Suspect]
     Active Substance: HUMAN IMMUNOGLOBULIN G
     Indication: Hypergammaglobulinaemia
     Dosage: 10 GRAM, 1/WEEK
     Dates: start: 20220326
  2. HUMAN IMMUNOGLOBULIN G [Suspect]
     Active Substance: HUMAN IMMUNOGLOBULIN G
     Indication: Immune system disorder
  3. DIPHENHYDRAMINE [Concomitant]
     Active Substance: DIPHENHYDRAMINE
  4. CLARITIN [Concomitant]
     Active Substance: LORATADINE
  5. EPINEPHRINE [Concomitant]
     Active Substance: EPINEPHRINE
  6. ALPRAZOLAM [Concomitant]
     Active Substance: ALPRAZOLAM
  7. ESTRADIOL [Concomitant]
     Active Substance: ESTRADIOL
     Dosage: UNK UNK, 1/WEEK
  8. OMEPRAZOLE [Concomitant]
     Active Substance: OMEPRAZOLE
  9. PREDNISONE [Concomitant]
     Active Substance: PREDNISONE
  10. TRAMADOL HCL [Concomitant]
     Active Substance: TRAMADOL HYDROCHLORIDE
  11. BIOTIN [Concomitant]
     Active Substance: BIOTIN
  12. ACETAMINOPHEN [Concomitant]
     Active Substance: ACETAMINOPHEN
  13. AMBIEN [Concomitant]
     Active Substance: ZOLPIDEM TARTRATE
  14. LEVOTHYROXINE [Concomitant]
     Active Substance: LEVOTHYROXINE
  15. FLUCONAZOLE [Concomitant]
     Active Substance: FLUCONAZOLE
  16. DIPHENHYDRAMINE HYDROCHLORIDE [Concomitant]
     Active Substance: DIPHENHYDRAMINE HYDROCHLORIDE

REACTIONS (26)
  - Post procedural complication [Unknown]
  - Eye haemorrhage [Unknown]
  - Infusion related reaction [Recovered/Resolved]
  - Skin reaction [Unknown]
  - Dermatitis contact [Recovered/Resolved]
  - COVID-19 [Not Recovered/Not Resolved]
  - Nasopharyngitis [Unknown]
  - Infusion site irritation [Recovered/Resolved]
  - Speech disorder [Unknown]
  - Procedural pain [Unknown]
  - Skin irritation [Unknown]
  - Sinus congestion [Unknown]
  - Viral infection [Unknown]
  - Respiratory tract infection viral [Recovered/Resolved]
  - Pharyngitis [Unknown]
  - Respiratory disorder [Unknown]
  - Norovirus infection [Unknown]
  - Administration site irritation [Unknown]
  - Somnolence [Unknown]
  - Sinusitis [Unknown]
  - Injection site erythema [Unknown]
  - Pain [Unknown]
  - Infusion site erythema [Recovered/Resolved]
  - Influenza like illness [Unknown]
  - Headache [Not Recovered/Not Resolved]
  - Fatigue [Unknown]

NARRATIVE: CASE EVENT DATE: 20220717
